FAERS Safety Report 5990804-6 (Version None)
Quarter: 2008Q4

REPORT INFORMATION
  Report Type: 
  Country: None (occurrence: None)
  Receive Date: 20081211
  Receipt Date: 20081202
  Transmission Date: 20090506
  Serious: Yes (Hospitalization, Other)
  Sender: FDA-Public Use
  Company Number: BR-BIOGENIDEC-2008BI023536

PATIENT
  Age: 51 Year
  Sex: Female

DRUGS (3)
  1. AVONEX [Suspect]
     Indication: MULTIPLE SCLEROSIS
     Route: 030
     Dates: start: 20030101
  2. ATENOLOL [Concomitant]
     Indication: HYPERTENSION
  3. BACLOFEN [Concomitant]
     Indication: MUSCLE RELAXANT THERAPY

REACTIONS (11)
  - ANKLE FRACTURE [None]
  - CYSTITIS [None]
  - FAMILY STRESS [None]
  - GAIT DISTURBANCE [None]
  - IMPAIRED HEALING [None]
  - INFECTION [None]
  - LOWER LIMB FRACTURE [None]
  - MEDICAL DEVICE COMPLICATION [None]
  - MULTIPLE SCLEROSIS [None]
  - MUSCLE SPASMS [None]
  - URINARY TRACT INFECTION [None]
